FAERS Safety Report 6932516-8 (Version None)
Quarter: 2010Q3

REPORT INFORMATION
  Report Type: 
  Country: None (occurrence: None)
  Receive Date: 20100817
  Receipt Date: 20100804
  Transmission Date: 20110219
  Serious: Yes (Hospitalization)
  Sender: FDA-Public Use
  Company Number: UTC-001309

PATIENT
  Age: 54 Year
  Sex: Male
  Weight: 93 kg

DRUGS (10)
  1. REMODULIN [Suspect]
     Dosage: 67.68 UG/KG (0.047 UG/KG, 1 IN 1 MIN), SUBCUTANEOUS
     Route: 058
     Dates: start: 20080425
  2. PROTONIX [Concomitant]
  3. PAXIL [Concomitant]
  4. LASIX [Concomitant]
  5. TYLENOL #3 (SOLPADEINE /00154101/) [Concomitant]
  6. COUMADIN [Concomitant]
  7. NEURONTIN [Concomitant]
  8. BACLOFEN [Concomitant]
  9. KLOR-CON [Concomitant]
  10. SEROQUEL [Concomitant]

REACTIONS (2)
  - OEDEMA [None]
  - PNEUMONIA [None]
